FAERS Safety Report 9894513 (Version 1)
Quarter: 2014Q1

REPORT INFORMATION
  Report Type: Report from Study
  Country: NL (occurrence: NL)
  Receive Date: 20140213
  Receipt Date: 20140213
  Transmission Date: 20141002
  Serious: Yes (Hospitalization)
  Sender: FDA-Public Use
  Company Number: PHHY2014NL017580

PATIENT
  Age: 72 Year
  Sex: Male

DRUGS (2)
  1. SANDOSTATIN LAR [Suspect]
     Indication: MACULAR OEDEMA
     Dosage: 30 MG PER 2 ML 1 X PER 4 WEEKS
     Route: 030
     Dates: start: 20131022
  2. SANDOSTATIN LAR [Suspect]
     Indication: OFF LABEL USE
     Dosage: 30 MG PER 2 ML 1 X PER 4 WEEKS
     Route: 030
     Dates: start: 20140114

REACTIONS (1)
  - Dyspnoea [Unknown]
